FAERS Safety Report 5140922-X (Version None)
Quarter: 2006Q4

REPORT INFORMATION
  Report Type: 
  Country: None (occurrence: None)
  Receive Date: 20060914
  Receipt Date: 20050908
  Transmission Date: 20070319
  Serious: Yes (Other)
  Sender: FDA-Public Use
  Company Number: PHEH2005US10043

PATIENT
  Age: 46 Year
  Sex: Male

DRUGS (4)
  1. DIOVAN [Suspect]
     Indication: HYPERTENSION
     Dosage: 160 MG, QD, ORAL
     Route: 048
     Dates: start: 20040101
  2. CELEBREX [Concomitant]
  3. FLONASE [Concomitant]
  4. NEXIUM [Concomitant]

REACTIONS (1)
  - BLOOD PRESSURE INCREASED [None]
